FAERS Safety Report 6490217-7 (Version None)
Quarter: 2009Q4

REPORT INFORMATION
  Report Type: 
  Country: None (occurrence: None)
  Receive Date: 20091124
  Receipt Date: 20090105
  Transmission Date: 20100525
  Serious: Yes (Hospitalization)
  Sender: FDA-Public Use
  Company Number: 200914516

PATIENT
  Age: 44 Year
  Sex: Female

DRUGS (3)
  1. PRIVIGEN [Suspect]
     Indication: MULTIPLE SCLEROSIS
     Dosage: 40 G DAILY IV
     Route: 042
     Dates: start: 20081113, end: 20081113
  2. PRIVIGEN [Suspect]
     Indication: MULTIPLE SCLEROSIS
     Dosage: 40 G DAILY IV
     Route: 042
     Dates: start: 20081204, end: 20081204
  3. PRIVIGEN [Suspect]
     Indication: MULTIPLE SCLEROSIS
     Dosage: 40 G DAILY IV
     Route: 042
     Dates: start: 20081223, end: 20081223

REACTIONS (5)
  - LIP SWELLING [None]
  - PHARYNGEAL OEDEMA [None]
  - PRURITUS [None]
  - SWOLLEN TONGUE [None]
  - URTICARIA [None]
